FAERS Safety Report 7348402-8 (Version None)
Quarter: 2011Q1

REPORT INFORMATION
  Report Type: 
  Country: None (occurrence: None)
  Receive Date: 20110311
  Receipt Date: 20110302
  Transmission Date: 20110831
  Serious: Yes (Life-Threatening, Hospitalization)
  Sender: FDA-Public Use
  Company Number: US-CELGENEUS-163-20785-11030319

PATIENT
  Sex: Male
  Weight: 93.07 kg

DRUGS (6)
  1. NEXIUM [Concomitant]
     Dosage: 40 MILLIGRAM
     Route: 065
  2. NAC DIAGNOSTIC REAGENT [Concomitant]
     Dosage: 600 MILLIGRAM
     Route: 065
  3. SIMVASTATIN [Concomitant]
     Dosage: 80 MILLIGRAM
     Route: 065
  4. THALOMID [Suspect]
     Indication: IDIOPATHIC PULMONARY FIBROSIS
     Dosage: 100 MILLIGRAM
     Route: 048
     Dates: start: 20090406
  5. FLUTICASONE [Concomitant]
     Indication: NASAL CONGESTION
     Dosage: 600 MILLIGRAM
     Route: 065
  6. TRICOR [Concomitant]
     Dosage: 145 MILLIGRAM
     Route: 065

REACTIONS (2)
  - PULMONARY EMBOLISM [None]
  - LUNG CARCINOMA CELL TYPE UNSPECIFIED RECURRENT [None]
